FAERS Safety Report 24223811 (Version 1)
Quarter: 2024Q3

REPORT INFORMATION
  Report Type: Spontaneous
  Country: US (occurrence: None)
  Receive Date: 20240816
  Receipt Date: 20240816
  Transmission Date: 20241016
  Serious: Yes (Hospitalization)
  Sender: Public
  Company Number: None

PATIENT
  Age: 90 Year
  Sex: Female
  Weight: 52.4 kg

DRUGS (1)
  1. THEOPHYLLINE [Suspect]
     Active Substance: THEOPHYLLINE
     Indication: Chronic obstructive pulmonary disease
     Dosage: FREQUENCY : TWICE A DAY;?
     Route: 048
     Dates: start: 20160201

REACTIONS (6)
  - Postictal state [None]
  - Generalised tonic-clonic seizure [None]
  - Mental status changes [None]
  - Atrial fibrillation [None]
  - Hypotension [None]
  - Toxicity to various agents [None]

NARRATIVE: CASE EVENT DATE: 20240528
